FAERS Safety Report 24185672 (Version 4)
Quarter: 2024Q3

REPORT INFORMATION
  Report Type: Report from Study
  Country: CN (occurrence: CN)
  Receive Date: 20240807
  Receipt Date: 20240919
  Transmission Date: 20241016
  Serious: Yes (Hospitalization)
  Sender: VERITY PHARMACEUTICALS
  Company Number: CN-VER-202400011

PATIENT
  Age: 79 Year
  Sex: Male
  Weight: 171 kg

DRUGS (29)
  1. TRIPTORELIN [Suspect]
     Active Substance: TRIPTORELIN
     Indication: Prostate cancer
     Dosage: 22.5 MILLIGRAM(S), IN 6 MONTH, POWDER AND SOLVENT FOR SUSPENSION FOR INJECTION.
     Route: 030
     Dates: start: 20240129
  2. POTASSIUM CHLORIDE [Concomitant]
     Active Substance: POTASSIUM CHLORIDE
     Indication: Infusion
     Dosage: (1 GRAM(S), IN 1 DAY)
     Route: 042
     Dates: start: 20240706, end: 20240708
  3. POTASSIUM CHLORIDE [Concomitant]
     Active Substance: POTASSIUM CHLORIDE
     Indication: Nutritional supplementation
     Dosage: (1 GRAM(S), IN 1 DAY)
     Route: 042
     Dates: start: 20240706, end: 20240708
  4. POTASSIUM CHLORIDE [Concomitant]
     Active Substance: POTASSIUM CHLORIDE
     Indication: Infusion
     Dosage: (1 GRAM(S), TWO TIME A DAY
     Route: 042
     Dates: start: 20240706, end: 20240712
  5. POTASSIUM CHLORIDE [Concomitant]
     Active Substance: POTASSIUM CHLORIDE
     Indication: Nutritional supplementation
     Dosage: (1 GRAM(S), TWO TIME A DAY
     Route: 042
     Dates: start: 20240706, end: 20240712
  6. POTASSIUM CHLORIDE [Concomitant]
     Active Substance: POTASSIUM CHLORIDE
     Indication: Infusion
     Dosage: (1 GRAM(S), TWO TIME A DAY
     Route: 042
     Dates: start: 20240715, end: 20240715
  7. POTASSIUM CHLORIDE [Concomitant]
     Active Substance: POTASSIUM CHLORIDE
     Indication: Nutritional supplementation
     Dosage: (1 GRAM(S), TWO TIME A DAY
     Route: 042
     Dates: start: 20240715, end: 20240715
  8. POTASSIUM CHLORIDE [Concomitant]
     Active Substance: POTASSIUM CHLORIDE
     Indication: Infusion
     Dosage: (2 GRAM(S), IN 1 DAY)
     Route: 042
     Dates: start: 20240713
  9. POTASSIUM CHLORIDE [Concomitant]
     Active Substance: POTASSIUM CHLORIDE
     Indication: Nutritional supplementation
     Dosage: (2 GRAM(S), IN 1 DAY)
     Route: 042
     Dates: start: 20240713
  10. VITAMIN C [Concomitant]
     Active Substance: ASCORBIC ACID
     Indication: Infusion
     Dosage: (1 GRAM(S), IN 1 DAY)
     Route: 042
     Dates: start: 20240706, end: 20240708
  11. PENICILLIN G BENZATHINE [Concomitant]
     Active Substance: PENICILLIN G BENZATHINE
     Indication: Syphilis
     Dosage: (2400000 INTERNATIONAL UNIT(S), IN 1 DAY)
     Route: 030
     Dates: start: 20240711
  12. VITAMIN B6 [Concomitant]
     Active Substance: PYRIDOXINE HYDROCHLORIDE
     Indication: Infusion
     Dosage: (50 MILLIGRAM(S), IN 1 DAY)
     Route: 042
     Dates: start: 20240706, end: 20240708
  13. STRUCTURE OF FAT EMULSION [Concomitant]
     Indication: Nutritional supplementation
     Dosage: (50 GRAM(S), IN 1 DAY)
     Route: 042
     Dates: start: 20240713
  14. DEXTROSE [Concomitant]
     Active Substance: DEXTROSE\DEXTROSE MONOHYDRATE
     Indication: Nutritional supplementation
     Dosage: (100 GRAM(S), IN 1 DAY)
     Route: 042
     Dates: start: 20240713
  15. DEXTROSE [Concomitant]
     Active Substance: DEXTROSE\DEXTROSE MONOHYDRATE
     Indication: Nutritional supplementation
     Dosage: (500 MILLILITRE(S), IN 1 DAY) / (100 GRAM(S), IN 1 DAY)
     Route: 042
     Dates: start: 20240713
  16. SODIUM CHLORIDE [Concomitant]
     Active Substance: SODIUM CHLORIDE
     Indication: Nutritional supplementation
     Dosage: (2 GRAM(S), IN 1 DAY)
     Route: 042
     Dates: start: 20240713
  17. WATER SOLUBLE VITAMIN [Concomitant]
     Indication: Nutritional supplementation
     Dosage: (1 DOSAGE FORM, IN 1 DAY)
     Route: 042
     Dates: start: 20240713
  18. VITAMINS [Concomitant]
     Active Substance: VITAMINS
     Indication: Nutritional supplementation
     Dosage: (10 MILLILITRE(S), IN 1 DAY)
     Route: 042
     Dates: start: 20240713
  19. CEFTAZIDIME [Concomitant]
     Active Substance: CEFTAZIDIME
     Indication: Infection prophylaxis
     Dosage: (2 GRAM(S), IN 12 HOUR)
     Route: 042
     Dates: start: 20240713
  20. INSULIN NOS [Concomitant]
     Active Substance: INSULIN NOS
     Indication: Nutritional supplementation
     Dosage: (14 INTERNATIONAL UNIT(S), IN 1 DAY)
     Route: 042
     Dates: start: 20240713
  21. GLYCERIN [Concomitant]
     Active Substance: GLYCERIN
     Indication: Enema administration
     Dosage: (120 MILLILITRE(S)) / ONCE VIA CLYSTER ROUTE
     Route: 065
     Dates: start: 20240713, end: 20240713
  22. GLYCERIN [Concomitant]
     Active Substance: GLYCERIN
     Indication: Enema administration
     Dosage: ONCE VIA CLYSTER ROUTE / (120 MILLILITRE(S))
     Route: 065
     Dates: start: 20240704, end: 20240704
  23. PANTOPRAZOLE [Concomitant]
     Active Substance: PANTOPRAZOLE
     Indication: Dyspepsia
     Route: 042
     Dates: start: 20240706
  24. MOSAPRIDE [Concomitant]
     Active Substance: MOSAPRIDE
     Indication: Dyspepsia
     Dosage: THREE TIMES A DAY
     Route: 048
     Dates: start: 20240707, end: 20240712
  25. MINERAL OIL [Concomitant]
     Active Substance: MINERAL OIL
     Indication: Bowel preparation
     Dosage: THREE TIME A DAY
     Route: 048
     Dates: start: 20240707, end: 20240707
  26. SIMETHICONE (DIMETHICONE) [Concomitant]
     Active Substance: DIMETHICONE
     Indication: Oesophagogastroscopy
     Dosage: ONCE
     Route: 048
     Dates: start: 20240709, end: 20240709
  27. DIMETHICONE [Concomitant]
     Active Substance: DIMETHICONE
     Indication: Oesophagogastroscopy
     Dosage: ONCE
     Route: 048
     Dates: start: 20240712, end: 20240712
  28. LOHEXOL INJECTION [Concomitant]
     Indication: Prophylaxis
     Dosage: ONCE
     Route: 042
     Dates: start: 20240707, end: 202407
  29. AMINO ACIDS, SOURCE UNSPECIFIED [Concomitant]
     Active Substance: AMINO ACIDS, SOURCE UNSPECIFIED
     Indication: Nutritional supplementation
     Dosage: THREE TIME A DAY
     Route: 042
     Dates: start: 20240713

REACTIONS (1)
  - Ileus [Recovered/Resolved]

NARRATIVE: CASE EVENT DATE: 20240706
